FAERS Safety Report 13527080 (Version 1)
Quarter: 2017Q2

REPORT INFORMATION
  Report Type: Spontaneous
  Country: US (occurrence: US)
  Receive Date: 20170509
  Receipt Date: 20170509
  Transmission Date: 20170830
  Serious: Yes (Other)
  Sender: FDA-Public Use
  Company Number: None

PATIENT
  Age: 57 Year
  Sex: Female
  Weight: 111.13 kg

DRUGS (1)
  1. DICLOFENAC GEL 1% [Suspect]
     Active Substance: DICLOFENAC

REACTIONS (2)
  - Rash [None]
  - Pruritus [None]
